FAERS Safety Report 24764981 (Version 1)
Quarter: 2024Q4

REPORT INFORMATION
  Report Type: Other
  Country: CN (occurrence: CN)
  Receive Date: 20241223
  Receipt Date: 20241223
  Transmission Date: 20250114
  Serious: Yes (Other)
  Sender: CHIA TAI TIANQING PHARMACEUTICAL GROUP
  Company Number: None

PATIENT
  Age: 70 Year
  Sex: Male
  Weight: 65.0 kg

DRUGS (1)
  1. FOSAPREPITANT DIMEGLUMINE [Suspect]
     Active Substance: FOSAPREPITANT\FOSAPREPITANT DIMEGLUMINE
     Indication: Colon cancer
     Route: 042
     Dates: start: 20241204, end: 20241204

REACTIONS (7)
  - Tachypnoea [Recovering/Resolving]
  - Dysphoria [Recovering/Resolving]
  - Erythema [Recovering/Resolving]
  - Cold sweat [Recovering/Resolving]
  - Oxygen saturation decreased [Recovering/Resolving]
  - Blood pressure decreased [Recovering/Resolving]
  - Chest discomfort [Recovering/Resolving]

NARRATIVE: CASE EVENT DATE: 20241204
